FAERS Safety Report 19169179 (Version 1)
Quarter: 2021Q2

REPORT INFORMATION
  Report Type: Report from Study
  Country: CH (occurrence: CH)
  Receive Date: 20210422
  Receipt Date: 20210422
  Transmission Date: 20210717
  Serious: Yes (Other)
  Sender: FDA-Public Use
  Company Number: CH-PFIZER INC-2021213973

PATIENT
  Age: 21 Year
  Sex: Female

DRUGS (7)
  1. FOLINIC ACID [Suspect]
     Active Substance: LEUCOVORIN
     Indication: CEREBRAL TOXOPLASMOSIS
     Dosage: 15 MG, 1X/DAY
  2. DIDANOSINE. [Suspect]
     Active Substance: DIDANOSINE
     Indication: HIV INFECTION
     Dosage: UNK
  3. PYRIMETHAMINE [Suspect]
     Active Substance: PYRIMETHAMINE
     Indication: CEREBRAL TOXOPLASMOSIS
     Dosage: 50 MG, 1X/DAY
  4. CLINDAMYCIN. [Suspect]
     Active Substance: CLINDAMYCIN
     Indication: CEREBRAL TOXOPLASMOSIS
     Dosage: 1800 MG, 1X/DAY
  5. ZIDOVUDINE. [Suspect]
     Active Substance: ZIDOVUDINE
     Indication: GASTROENTERITIS SALMONELLA
     Dosage: UNK
  6. PHENYTOIN. [Suspect]
     Active Substance: PHENYTOIN
     Indication: CEREBRAL TOXOPLASMOSIS
     Dosage: UNK
  7. SULFADIAZINE. [Suspect]
     Active Substance: SULFADIAZINE
     Indication: CEREBRAL TOXOPLASMOSIS
     Dosage: 4 G, 1X/DAY

REACTIONS (2)
  - Pancytopenia [Unknown]
  - Maternal exposure during pregnancy [Unknown]

NARRATIVE: CASE EVENT DATE: 1990
